FAERS Safety Report 5878686-4 (Version None)
Quarter: 2008Q3

REPORT INFORMATION
  Report Type: 
  Country: None (occurrence: None)
  Receive Date: 20080912
  Receipt Date: 20080903
  Transmission Date: 20090109
  Serious: Yes (Hospitalization)
  Sender: FDA-Public Use
  Company Number: US-WYE-H05831208

PATIENT
  Sex: Female

DRUGS (5)
  1. PHENERGAN HCL [Suspect]
     Dosage: OVERDOSE AMOUNT UNSPECIFIED
     Dates: start: 20070101, end: 20070101
  2. COMPAZINE [Suspect]
     Dosage: OVERDOSE AMOUNT UNSPECIFIED
     Dates: start: 20070101, end: 20070101
  3. PERCOCET [Suspect]
     Dosage: OVERDOSE AMOUNT UNSPECIFIED
     Dates: start: 20070101, end: 20070101
  4. AMBIEN CR [Suspect]
     Dosage: OVERDOSE AMOUNT UNSPECIFIED
     Dates: start: 20070101, end: 20070101
  5. LORTAB [Suspect]
     Dosage: OVERDOSE AMOUNT UNSPECIFIED
     Dates: start: 20070101, end: 20070101

REACTIONS (2)
  - DRUG TOXICITY [None]
  - OVERDOSE [None]
